FAERS Safety Report 6982366-1 (Version None)
Quarter: 2010Q3

REPORT INFORMATION
  Report Type: 
  Country: None (occurrence: None)
  Receive Date: 20100914
  Receipt Date: 20100105
  Transmission Date: 20110219
  Serious: Yes (Other)
  Sender: FDA-Public Use
  Company Number: US-PFIZER INC-2010001993

PATIENT
  Sex: Female
  Weight: 102 kg

DRUGS (3)
  1. LYRICA [Suspect]
     Indication: FIBROMYALGIA
     Route: 048
  2. KLONOPIN [Concomitant]
     Indication: ANXIETY
     Dosage: 1 MG, 2X/DAY
     Route: 048
  3. KLONOPIN [Concomitant]
     Indication: PANIC DISORDER

REACTIONS (5)
  - ANXIETY [None]
  - PANIC REACTION [None]
  - PHOTOPHOBIA [None]
  - VISION BLURRED [None]
  - VISUAL ACUITY REDUCED [None]
